FAERS Safety Report 6510091-X (Version None)
Quarter: 2009Q4

REPORT INFORMATION
  Report Type: 
  Country: None (occurrence: None)
  Receive Date: 20091217
  Receipt Date: 20090708
  Transmission Date: 20100525
  Serious: Yes (Death, Hospitalization, Other)
  Sender: FDA-Public Use
  Company Number: 2009040082

PATIENT
  Age: 71 Year
  Sex: Male

DRUGS (19)
  1. TOREM (TORASEMIDE) [Suspect]
     Dates: start: 20080723, end: 20090522
  2. SAXAGLIPTIN (SAXAGLIPTIN) [Suspect]
     Indication: TYPE 2 DIABETES MELLITUS
     Dosage: (2.5 MG) ,ORAL
     Route: 048
     Dates: start: 20070730, end: 20090522
  3. LISINOPRIL [Suspect]
     Dosage: 20 MCG (20 MCG, 1 IN 1 D)
     Dates: start: 20090110, end: 20090522
  4. FOSINOPRIL SODIUM [Suspect]
     Dates: end: 20090522
  5. NEBIVOLOL HCL [Suspect]
     Dates: end: 20090522
  6. DOXAZOSIN MESYLATE [Suspect]
     Dosage: 2 MG (2 MG, 1 IN 1 D) ,ORAL
     Route: 048
     Dates: start: 20090114, end: 20090522
  7. LERCANIDIPINE [Suspect]
     Dates: end: 20090522
  8. INSUMAN COMB 25 (BIPHASIC) [Suspect]
     Indication: TYPE 2 DIABETES MELLITUS
     Dosage: 1 DOSAGE FORMS (1 DOSAGE FORMS, 1 IN 1 D) ,SUBCUTANEOUS
     Route: 058
     Dates: start: 20080723, end: 20090522
  9. ASPIRIN [Concomitant]
  10. ALLOPURINOL [Concomitant]
  11. AMOXICILLIN W/CLAVULANIC ACID (AMOXICILLIN, CLAVULANIC ACID) [Concomitant]
  12. XIPAMIDE (XIPAMIDE) [Concomitant]
  13. BISOPROLOL FUMARATE [Concomitant]
  14. METOPROLOL (METOPROLOL) [Concomitant]
  15. TRAMADOL HCL [Concomitant]
  16. NOVAMINSULFON (DIPYRONE) [Concomitant]
  17. CEFUROXIME [Concomitant]
  18. POTASSIUM (POTASSIUM) [Concomitant]
  19. AMLODIPINE [Concomitant]

REACTIONS (18)
  - ABDOMINAL PAIN UPPER [None]
  - ARTERIOVENOUS FISTULA OPERATION [None]
  - AZOTAEMIA [None]
  - BLOOD CREATININE INCREASED [None]
  - BLOOD UREA INCREASED [None]
  - BUNDLE BRANCH BLOCK LEFT [None]
  - C-REACTIVE PROTEIN INCREASED [None]
  - CARDIAC ARREST [None]
  - LEFT VENTRICULAR FAILURE [None]
  - ORTHOSTATIC HYPOTENSION [None]
  - PLEURAL EFFUSION [None]
  - PNEUMONIA [None]
  - PROCEDURAL COMPLICATION [None]
  - PULMONARY CONGESTION [None]
  - PULMONARY OEDEMA [None]
  - SUDDEN DEATH [None]
  - THROMBOSIS [None]
  - VOMITING [None]
